FAERS Safety Report 9832293 (Version 2)
Quarter: 2014Q1

REPORT INFORMATION
  Report Type: Spontaneous
  Country: FR (occurrence: FR)
  Receive Date: 20140121
  Receipt Date: 20140121
  Transmission Date: 20141002
  Serious: Yes (Hospitalization)
  Sender: FDA-Public Use
  Company Number: FR-TAKEDA-2014TUS000151

PATIENT
  Sex: 0

DRUGS (5)
  1. ADENURIC [Suspect]
     Indication: HYPERURICAEMIA
     Dosage: UNK
     Route: 048
     Dates: end: 20131125
  2. EFFEXOR [Suspect]
     Indication: DEPRESSION
     Dosage: 75 MG, QD
     Route: 048
     Dates: end: 20131125
  3. BIPRETERAX [Suspect]
     Indication: HYPERTENSION
     Dosage: 10MG/2.5MG, QD
     Route: 048
     Dates: end: 20131125
  4. CARDENSIEL [Concomitant]
     Indication: HYPERTENSION
     Dosage: 1.25 MG, QD
     Route: 048
  5. SIMVASTATINE [Concomitant]
     Indication: PRODUCT USED FOR UNKNOWN INDICATION
     Route: 048

REACTIONS (4)
  - Hallucination, auditory [Not Recovered/Not Resolved]
  - Hallucination, visual [Not Recovered/Not Resolved]
  - Hyponatraemia [Recovered/Resolved]
  - Constipation [Not Recovered/Not Resolved]
